FAERS Safety Report 16887672 (Version 1)
Quarter: 2019Q4

REPORT INFORMATION
  Report Type: Spontaneous
  Country: US (occurrence: US)
  Receive Date: 20191005
  Receipt Date: 20191005
  Transmission Date: 20200122
  Serious: No
  Sender: FDA-Public Use
  Company Number: US-TEVA-2019-US-1116719

PATIENT
  Age: 83 Year
  Sex: Female

DRUGS (1)
  1. OXYBUTYNIN. [Suspect]
     Active Substance: OXYBUTYNIN CHLORIDE
     Route: 065
     Dates: start: 201706

REACTIONS (4)
  - Tooth disorder [Unknown]
  - Tooth fracture [Unknown]
  - Eye disorder [Unknown]
  - Dental caries [Unknown]

NARRATIVE: CASE EVENT DATE: 201709
